FAERS Safety Report 11337871 (Version 1)
Quarter: 2015Q3

REPORT INFORMATION
  Report Type: Spontaneous
  Country: US (occurrence: US)
  Receive Date: 20150803
  Receipt Date: 20150803
  Transmission Date: 20151125
  Serious: No
  Sender: FDA-Public Use
  Company Number: US-ELI_LILLY_AND_COMPANY-US201002003653

PATIENT
  Age: 84 Year

DRUGS (1)
  1. ZYPREXA ZYDIS [Suspect]
     Active Substance: OLANZAPINE
     Indication: ANXIETY
     Dates: start: 20100204, end: 20100208

REACTIONS (2)
  - Dysstasia [Unknown]
  - Dyskinesia [Recovered/Resolved]

NARRATIVE: CASE EVENT DATE: 20100205
